FAERS Safety Report 4996497-9 (Version None)
Quarter: 2006Q2

REPORT INFORMATION
  Report Type: 
  Country: None (occurrence: None)
  Receive Date: 20060505
  Receipt Date: 20060424
  Transmission Date: 20061013
  Serious: Yes (Other)
  Sender: FDA-Public Use
  Company Number: 2006S1000085

PATIENT
  Age: 80 Year
  Sex: Female

DRUGS (1)
  1. CUBICIN [Suspect]
     Indication: LOCALISED INFECTION
     Dosage: 4 MG/KG; Q24H;

REACTIONS (2)
  - ENCEPHALOPATHY [None]
  - PARALYSIS [None]
